FAERS Safety Report 6794146-0 (Version None)
Quarter: 2010Q2

REPORT INFORMATION
  Report Type: 
  Country: None (occurrence: None)
  Receive Date: 20100624
  Receipt Date: 20080407
  Transmission Date: 20101027
  Serious: No
  Sender: FDA-Public Use
  Company Number: US-PFIZER INC-ENC200800070

PATIENT
  Age: 66 Year
  Sex: Female

DRUGS (6)
  1. ARGATROBAN [Suspect]
     Indication: HEPARIN-INDUCED THROMBOCYTOPENIA
     Dosage: 2 MCG/KG/MIN
     Route: 042
     Dates: start: 20080324, end: 20080328
  2. ARGATROBAN [Suspect]
     Dosage: 3.75 MCG/KG/MIN
     Route: 042
     Dates: start: 20080328, end: 20080329
  3. ARGATROBAN [Suspect]
     Dosage: 4 MCG/KG/MIN
     Route: 042
     Dates: start: 20080329, end: 20080331
  4. ARGATROBAN [Suspect]
     Dosage: 4.25 MCG/KG/MIN
     Route: 042
     Dates: start: 20080331, end: 20080407
  5. ARGATROBAN [Suspect]
     Dosage: 6.75 MCG/KD/MIN
     Route: 042
     Dates: start: 20080407
  6. HEPARIN [Suspect]
     Indication: THROMBOEMBOLECTOMY
     Dates: start: 20080314, end: 20080320

REACTIONS (1)
  - ACTIVATED PARTIAL THROMBOPLASTIN TIME ABNORMAL [None]
